FAERS Safety Report 10681183 (Version 4)
Quarter: 2015Q1

REPORT INFORMATION
  Report Type: Report from Study
  Country: GB (occurrence: GB)
  Receive Date: 20141230
  Receipt Date: 20150205
  Transmission Date: 20150720
  Serious: Yes (Hospitalization)
  Sender: FDA-Public Use
  Company Number: GB-009507513-1411GBR000886

PATIENT
  Age: 72 Year
  Sex: Male
  Weight: 87.9 kg

DRUGS (10)
  1. TEMOZOLOMIDE. [Suspect]
     Active Substance: TEMOZOLOMIDE
     Indication: GLIOMA
     Dosage: 75 MG/M2, QD (ACTUAL DOSE = 150 MG)
     Route: 048
     Dates: start: 20140717, end: 20140902
  2. DEXAMETHASONE. [Concomitant]
     Active Substance: DEXAMETHASONE
     Indication: BRAIN OEDEMA
     Dosage: 6 MG, QD
     Route: 048
     Dates: end: 20150112
  3. DIAZEPAM. [Concomitant]
     Active Substance: DIAZEPAM
     Indication: THROMBOSIS
     Dosage: 15000 U, QD
     Route: 058
     Dates: start: 20141001
  4. LANSOPRAZOLE. [Concomitant]
     Active Substance: LANSOPRAZOLE
     Indication: GASTROOESOPHAGEAL REFLUX DISEASE
  5. DALTEPARIN SODIUM [Suspect]
     Active Substance: DALTEPARIN SODIUM
     Indication: THROMBOSIS
     Dosage: 15000 UNITS, QD
     Route: 058
     Dates: start: 20141010, end: 20150112
  6. AMOXICILLIN. [Concomitant]
     Active Substance: AMOXICILLIN
     Indication: STOMATITIS
     Dosage: 500 MG, TID
     Route: 048
     Dates: start: 20141023
  7. TEMOZOLOMIDE. [Suspect]
     Active Substance: TEMOZOLOMIDE
     Dosage: 150-200MG/M2/D, D1-5(EVERY 28 DAYS) (ACTUAL DOSE = 300 MG)
     Route: 048
     Dates: start: 20141001, end: 20141005
  8. LANSOPRAZOLE. [Concomitant]
     Active Substance: LANSOPRAZOLE
     Indication: PROPHYLAXIS
     Dosage: 30 MG, QD
     Route: 048
     Dates: end: 20150112
  9. FINASTERIDE. [Concomitant]
     Active Substance: FINASTERIDE
     Indication: BENIGN PROSTATIC HYPERPLASIA
     Dosage: 5 MG, QD
     Route: 048
     Dates: end: 20150112
  10. LISINOPRIL. [Concomitant]
     Active Substance: LISINOPRIL
     Indication: HYPERTENSION
     Dosage: UNK, QD
     Route: 048
     Dates: end: 20150112

REACTIONS (4)
  - Rectal haemorrhage [Recovered/Resolved]
  - Neutropenia [Not Recovered/Not Resolved]
  - Thrombocytopenia [Not Recovered/Not Resolved]
  - Pneumonia aspiration [Not Recovered/Not Resolved]

NARRATIVE: CASE EVENT DATE: 20141020
